FAERS Safety Report 9330866 (Version 1)
Quarter: 2013Q2

REPORT INFORMATION
  Report Type: Spontaneous
  Country: DE (occurrence: DE)
  Receive Date: 20130605
  Receipt Date: 20130605
  Transmission Date: 20140414
  Serious: Yes (Other)
  Sender: FDA-Public Use
  Company Number: DE-BAYER-2013-067543

PATIENT
  Sex: Male

DRUGS (1)
  1. NIMOTOP S [Suspect]
     Indication: WITHDRAWAL SYNDROME
     Dosage: UNK
     Dates: start: 198907

REACTIONS (4)
  - Cognitive disorder [None]
  - Coordination abnormal [None]
  - Illusion [None]
  - Off label use [None]
